FAERS Safety Report 15901248 (Version 1)
Quarter: 2019Q1

REPORT INFORMATION
  Report Type: Spontaneous
  Country: US (occurrence: US)
  Receive Date: 20190201
  Receipt Date: 20190201
  Transmission Date: 20190417
  Serious: No
  Sender: FDA-Public Use
  Company Number: US-BRISTOL-MYERS SQUIBB COMPANY-BMS-2019-009916

PATIENT
  Sex: Male

DRUGS (1)
  1. ELIQUIS [Suspect]
     Active Substance: APIXABAN
     Indication: PULMONARY EMBOLISM
     Dosage: 5 MG, UNK
     Route: 065
     Dates: start: 20181009

REACTIONS (6)
  - Anxiety [Unknown]
  - Hypoaesthesia [Unknown]
  - Affective disorder [Unknown]
  - Emotional disorder [Unknown]
  - Depression [Unknown]
  - Paraesthesia [Unknown]
